FAERS Safety Report 6158358-1 (Version None)
Quarter: 2009Q2

REPORT INFORMATION
  Report Type: 
  Country: None (occurrence: None)
  Receive Date: 20090417
  Receipt Date: 20090406
  Transmission Date: 20091009
  Serious: Yes (Hospitalization, Other)
  Sender: FDA-Public Use
  Company Number: GB-NOVOPROD-286000

PATIENT
  Sex: Male

DRUGS (3)
  1. NORDITROPIN [Suspect]
     Indication: DRUG USE FOR UNKNOWN INDICATION
     Dates: start: 20030114
  2. HYDROCORTISONE [Concomitant]
     Dosage: 17.5 MG, QD (7.5+5+5)
  3. THYROXINE [Concomitant]
     Dosage: 75 UG, QD (50 TO 75)

REACTIONS (1)
  - SPINAL CORD NEOPLASM [None]
